FAERS Safety Report 18016876 (Version 2)
Quarter: 2020Q3

REPORT INFORMATION
  Report Type: Report from Study
  Country: US (occurrence: US)
  Receive Date: 20200713
  Receipt Date: 20200713
  Transmission Date: 20201103
  Serious: No
  Sender: FDA-Public Use
  Company Number: US-VANDA PHARMACEUTICALS, INC-2020TASUS003964

PATIENT
  Sex: Male

DRUGS (1)
  1. HETLIOZ [Suspect]
     Active Substance: TASIMELTEON
     Indication: NON-24-HOUR SLEEP-WAKE DISORDER
     Dosage: 20 MG, QD (1HR BEFORE BEDTIME AT THE SAME TIME EVERY NIGHT)
     Dates: start: 202004, end: 202004

REACTIONS (6)
  - Dizziness [Unknown]
  - Incorrect dosage administered [Unknown]
  - Gait disturbance [Unknown]
  - Chills [Unknown]
  - Headache [Unknown]
  - Asthenia [Unknown]
